FAERS Safety Report 24944742 (Version 1)
Quarter: 2025Q1

REPORT INFORMATION
  Report Type: Spontaneous
  Country: US (occurrence: US)
  Receive Date: 20250208
  Receipt Date: 20250208
  Transmission Date: 20250408
  Serious: No
  Sender: AMGEN
  Company Number: US-AMGEN-USASP2025023669

PATIENT
  Sex: Male

DRUGS (3)
  1. EPOGEN [Suspect]
     Active Substance: ERYTHROPOIETIN
     Indication: Nephrogenic anaemia
     Route: 065
     Dates: start: 2020
  2. EPOGEN [Suspect]
     Active Substance: ERYTHROPOIETIN
     Route: 065
     Dates: start: 20241114
  3. IRON [Concomitant]
     Active Substance: IRON
     Route: 065

REACTIONS (2)
  - Fall [Unknown]
  - Hypersomnia [Unknown]

NARRATIVE: CASE EVENT DATE: 20240101
